FAERS Safety Report 22185408 (Version 1)
Quarter: 2023Q2

REPORT INFORMATION
  Report Type: Spontaneous
  Country: US (occurrence: None)
  Receive Date: 20230406
  Receipt Date: 20230406
  Transmission Date: 20230721
  Serious: Yes (Other)
  Sender: FDA-Public Use
  Company Number: None

PATIENT
  Age: 45 Year
  Sex: Female
  Weight: 144.9 kg

DRUGS (14)
  1. TRELEGY ELLIPTA [Suspect]
     Active Substance: FLUTICASONE FUROATE\UMECLIDINIUM BROMIDE\VILANTEROL TRIFENATATE
     Indication: Asthma
     Dosage: OTHER STRENGTH : MCG;?OTHER QUANTITY : 1 INHALATION(S);?
     Route: 048
     Dates: start: 20230323, end: 20230405
  2. NUVIGIL [Concomitant]
     Active Substance: ARMODAFINIL
  3. Savella 50mg * 2 [Concomitant]
  4. Propanolol 10 mg * 2 [Concomitant]
  5. MONTELUKAST [Concomitant]
     Active Substance: MONTELUKAST SODIUM
  6. vitamin D3 50,000 [Concomitant]
  7. Levbid 0.375 [Concomitant]
  8. MELOXICAM [Concomitant]
     Active Substance: MELOXICAM
  9. BACLOFEN [Concomitant]
     Active Substance: BACLOFEN
  10. LEVOCETIRIZINE [Concomitant]
     Active Substance: LEVOCETIRIZINE
  11. Trulance 3 mg [Concomitant]
  12. BENZONATATE [Concomitant]
     Active Substance: BENZONATATE
  13. AMBIEN [Concomitant]
     Active Substance: ZOLPIDEM TARTRATE
  14. MIDOL [Concomitant]
     Active Substance: IBUPROFEN

REACTIONS (6)
  - Abdominal pain upper [None]
  - Tooth discolouration [None]
  - Visual impairment [None]
  - Menstrual disorder [None]
  - Bone pain [None]
  - Tooth injury [None]

NARRATIVE: CASE EVENT DATE: 20230331
